FAERS Safety Report 8062446-2 (Version None)
Quarter: 2012Q1

REPORT INFORMATION
  Report Type: 
  Country: None (occurrence: None)
  Receive Date: 20120123
  Receipt Date: 20120113
  Transmission Date: 20120608
  Serious: Yes (Hospitalization)
  Sender: FDA-Public Use
  Company Number: US-ACTELION-A-US2012-59740

PATIENT

DRUGS (2)
  1. EPOPROSTENOL SODIUM [Suspect]
     Indication: PULMONARY ARTERIAL HYPERTENSION
     Dosage: 16 NG/KG, PER MIN
     Route: 042
     Dates: start: 20110428
  2. SILDENAFIL [Concomitant]

REACTIONS (4)
  - KNEE OPERATION [None]
  - LOCALISED INFECTION [None]
  - GAIT DISTURBANCE [None]
  - CATHETER REMOVAL [None]
